FAERS Safety Report 5718600-5 (Version None)
Quarter: 2008Q2

REPORT INFORMATION
  Report Type: 
  Country: None (occurrence: None)
  Receive Date: 20080425
  Receipt Date: 20080414
  Transmission Date: 20081010
  Serious: Yes (Other)
  Sender: FDA-Public Use
  Company Number: HR-PFIZER INC-2008024419

PATIENT
  Age: 70 Year
  Sex: Male
  Weight: 70 kg

DRUGS (2)
  1. LYRICA [Suspect]
     Indication: POLYNEUROPATHY
     Route: 048
     Dates: start: 20080218, end: 20080224
  2. BUPRENORPHINE HCL [Concomitant]
     Route: 062

REACTIONS (7)
  - DYSPHAGIA [None]
  - HYPOAESTHESIA ORAL [None]
  - LACRIMATION INCREASED [None]
  - LIP SWELLING [None]
  - OEDEMA PERIPHERAL [None]
  - SWELLING FACE [None]
  - SWOLLEN TONGUE [None]
